FAERS Safety Report 11728637 (Version 2)
Quarter: 2017Q1

REPORT INFORMATION
  Report Type: Spontaneous
  Country: US (occurrence: US)
  Receive Date: 20151112
  Receipt Date: 20170329
  Transmission Date: 20170428
  Serious: Yes (Other)
  Sender: FDA-Public Use
  Company Number: US-ELI_LILLY_AND_COMPANY-US201511002519

PATIENT
  Sex: Female

DRUGS (6)
  1. VITAMIN D3 [Concomitant]
     Active Substance: CHOLECALCIFEROL
     Dosage: 1000 DF, QD
     Route: 065
  2. CYMBALTA [Suspect]
     Active Substance: DULOXETINE HYDROCHLORIDE
     Indication: PAIN
     Dosage: 60 MG, QD
     Route: 065
  3. CYMBALTA [Suspect]
     Active Substance: DULOXETINE HYDROCHLORIDE
     Indication: DEPRESSION
  4. BUSPIRONE [Concomitant]
     Active Substance: BUSPIRONE HYDROCHLORIDE
     Dosage: 15 MG, BID
     Route: 065
  5. VISTARIL                           /00058402/ [Concomitant]
     Active Substance: HYDROXYZINE HYDROCHLORIDE
     Dosage: 100 MG, QID
     Route: 065
  6. ADDERALL [Concomitant]
     Active Substance: AMPHETAMINE ASPARTATE\AMPHETAMINE SULFATE\DEXTROAMPHETAMINE SACCHARATE\DEXTROAMPHETAMINE SULFATE
     Dosage: 30 MG, QD
     Route: 065

REACTIONS (24)
  - Vertigo [Unknown]
  - Vomiting [Unknown]
  - Crying [Unknown]
  - Irritability [Unknown]
  - Headache [Unknown]
  - Aggression [Unknown]
  - Intentional product misuse [Unknown]
  - Paraesthesia [Unknown]
  - Vision blurred [Unknown]
  - Agitation [Unknown]
  - Anxiety [Unknown]
  - Tinnitus [Unknown]
  - Drug dose omission [Unknown]
  - Nausea [Unknown]
  - Dizziness [Unknown]
  - Sensory disturbance [Unknown]
  - Drug withdrawal syndrome [Unknown]
  - Confusional state [Unknown]
  - Insomnia [Unknown]
  - Sleep disorder [Unknown]
  - Blood glucose decreased [Unknown]
  - Diarrhoea [Unknown]
  - Affect lability [Unknown]
  - Hyperhidrosis [Unknown]
